FAERS Safety Report 8806297 (Version 5)
Quarter: 2013Q1

REPORT INFORMATION
  Report Type: Spontaneous
  Country: US (occurrence: None)
  Receive Date: 20120919
  Receipt Date: 20130226
  Transmission Date: 20140127
  Serious: Yes (Other)
  Sender: FDA-Public Use
  Company Number: AUR-APL-2012-04014

PATIENT
  Age: 74 Year
  Sex: Female
  Weight: 72.58 kg

DRUGS (10)
  1. GABAPENTIN [Suspect]
     Indication: SLEEP DISORDER
     Dosage: 5600MG (2 400MG THREE TIMES DURING THE DAY AND FOUR  400MG AT THE INTERVAL OF 15 MINUTES TWICE AT NIGHT) (1 IN 1 D), ORAL
     Route: 048
     Dates: start: 201207
  2. GABAPENTIN [Suspect]
     Indication: SEDATIVE THERAPY
     Dosage: 5600MG (2 400MG THREE TIMES DURING THE DAY AND FOUR  400MG AT THE INTERVAL OF 15 MINUTES TWICE AT NIGHT) (1 IN 1 D), ORAL
     Route: 048
     Dates: start: 201207
  3. PAXIL CR (PAROXETINE HYDROCHLORIDE) [Concomitant]
  4. LITHOBID (LITHIUM CARBONATE) [Concomitant]
  5. KLONOPIN (CLONAZEPAM) [Concomitant]
  6. SYNTHROID (LEVOTHYROXINE SODIUM) [Concomitant]
  7. NORVASC (AMLODIPINE BESILATE) [Concomitant]
  8. ZOLOFT (SERTRALINE) [Concomitant]
  9. ASPIRIN (ACETYLSALICYLIC ACID) [Concomitant]
  10. NEURONTIN (GABAPENTIN) [Concomitant]

REACTIONS (3)
  - Drug ineffective [None]
  - Gastrointestinal disorder [None]
  - Tenderness [None]
